FAERS Safety Report 5925360-1 (Version None)
Quarter: 2008Q4

REPORT INFORMATION
  Report Type: 
  Country: None (occurrence: None)
  Receive Date: 20081020
  Receipt Date: 20081020
  Transmission Date: 20090506
  Serious: Yes (Other)
  Sender: FDA-Public Use
  Company Number: None

PATIENT
  Age: 52 Year
  Sex: Male
  Weight: 91 kg

DRUGS (1)
  1. HYDROMORPHONE HCL [Suspect]
     Indication: PAIN MANAGEMENT
     Dosage: 4MG EVERY 2 HOURS PRN IV BOLUS
     Route: 040
     Dates: start: 20080618, end: 20080619

REACTIONS (2)
  - DEPRESSED LEVEL OF CONSCIOUSNESS [None]
  - PO2 DECREASED [None]
